FAERS Safety Report 19564063 (Version 1)
Quarter: 2021Q3

REPORT INFORMATION
  Report Type: Spontaneous
  Country: AU (occurrence: AU)
  Receive Date: 20210714
  Receipt Date: 20210714
  Transmission Date: 20211014
  Serious: Yes (Other)
  Sender: FDA-Public Use
  Company Number: AU-AMGEN-AUSSP2021104888

PATIENT
  Age: 76 Year
  Sex: Female

DRUGS (8)
  1. FEXOTABS [Concomitant]
  2. METAMUCIL THERAPY FOR REGULARITY [Concomitant]
     Active Substance: PSYLLIUM HUSK
  3. PANADEINE FORTE [Concomitant]
     Active Substance: ACETAMINOPHEN\CODEINE PHOSPHATE
  4. PROLIA [Suspect]
     Active Substance: DENOSUMAB
     Indication: OSTEOPOROSIS
     Dosage: UNK, Q6MO
     Route: 065
     Dates: start: 2018
  5. AVAPRO [Concomitant]
     Active Substance: IRBESARTAN
  6. CALTRATE [Concomitant]
     Active Substance: CALCIUM CARBONATE
  7. BETALOC [METOPROLOL TARTRATE] [Concomitant]
     Active Substance: METOPROLOL TARTRATE
  8. NEO B12 [Concomitant]
     Active Substance: HYDROXOCOBALAMIN

REACTIONS (4)
  - Suicidal ideation [Unknown]
  - Pruritus [Not Recovered/Not Resolved]
  - Anxiety [Unknown]
  - Rash [Unknown]
